FAERS Safety Report 8353644-9 (Version None)
Quarter: 2012Q2

REPORT INFORMATION
  Report Type: 
  Country: None (occurrence: None)
  Receive Date: 20120511
  Receipt Date: 20120502
  Transmission Date: 20120825
  Serious: Yes (Hospitalization)
  Sender: FDA-Public Use
  Company Number: FR-ASTRAZENECA-2012SE28726

PATIENT
  Age: 1094 Month
  Sex: Male

DRUGS (8)
  1. NEXIUM [Suspect]
     Route: 048
  2. BISOPROLOL FUMARATE [Suspect]
     Route: 048
     Dates: start: 20100101
  3. ASPIRIN [Suspect]
     Route: 048
     Dates: start: 20100101
  4. ACETAMINOPHEN AND TRAMADOL HCL [Suspect]
     Route: 048
  5. METFORMIN HCL [Suspect]
     Route: 048
  6. ACETAMINOPHEN [Suspect]
     Route: 048
  7. POTASSIUM CHLORIDE [Suspect]
     Route: 048
     Dates: start: 20100101
  8. ADANCOR [Suspect]
     Route: 048
     Dates: start: 20100101

REACTIONS (1)
  - APHTHOUS STOMATITIS [None]
